FAERS Safety Report 24355599 (Version 1)
Quarter: 2024Q3

REPORT INFORMATION
  Report Type: Spontaneous
  Country: US (occurrence: US)
  Receive Date: 20240924
  Receipt Date: 20240924
  Transmission Date: 20241017
  Serious: No
  Sender: GLAXOSMITHKLINE
  Company Number: US-GSK-US2024AMR115368

PATIENT
  Age: 28 Year
  Sex: Female
  Weight: 69.8 kg

DRUGS (2)
  1. LAMICTAL [Suspect]
     Active Substance: LAMOTRIGINE
     Indication: Product used for unknown indication
     Dosage: UNK, 125 MG OR 150 MG
  2. SUNOSI [Suspect]
     Active Substance: SOLRIAMFETOL
     Indication: Product used for unknown indication
     Dosage: 150 MG, QD (DURING THE DAYTIME)

REACTIONS (4)
  - Serum serotonin increased [Recovered/Resolved]
  - Trismus [Unknown]
  - Facial pain [Unknown]
  - Product taste abnormal [Unknown]
